FAERS Safety Report 5643002-X (Version None)
Quarter: 2008Q1

REPORT INFORMATION
  Report Type: 
  Country: None (occurrence: None)
  Receive Date: 20080228
  Receipt Date: 20080220
  Transmission Date: 20080703
  Serious: Yes (Death, Hospitalization)
  Sender: FDA-Public Use
  Company Number: B0509994A

PATIENT
  Age: 60 Year
  Sex: Male

DRUGS (2)
  1. ARIXTRA [Suspect]
     Dosage: 7.5MG PER DAY
  2. HEPARIN [Concomitant]

REACTIONS (6)
  - ANURIA [None]
  - HAEMORRHAGE [None]
  - HYPOTENSION [None]
  - INTRA-ABDOMINAL HAEMATOMA [None]
  - THROMBOCYTOPENIA [None]
  - THROMBOSIS [None]
